FAERS Safety Report 5068073-3 (Version None)
Quarter: 2006Q3

REPORT INFORMATION
  Report Type: 
  Country: None (occurrence: None)
  Receive Date: 20060731
  Receipt Date: 20060717
  Transmission Date: 20061208
  Serious: Yes (Death)
  Sender: FDA-Public Use
  Company Number: 2006021119

PATIENT
  Age: 44 Year
  Sex: Male
  Weight: 108.8633 kg

DRUGS (2)
  1. CELEBREX [Suspect]
     Indication: BACK PAIN
     Dosage: 400 MG (200 MG, 2I N 1 D),
     Dates: start: 20021107, end: 20031108
  2. CELEBREX [Suspect]
     Indication: PAIN IN EXTREMITY
     Dosage: 400 MG (200 MG, 2I N 1 D),
     Dates: start: 20021107, end: 20031108

REACTIONS (3)
  - CARDIAC DISORDER [None]
  - CYANOSIS [None]
  - RESPIRATION ABNORMAL [None]
